FAERS Safety Report 4604580-2 (Version None)
Quarter: 2005Q2

REPORT INFORMATION
  Report Type: 
  Country: None (occurrence: None)
  Receive Date: 20050217
  Receipt Date: 20041022
  Transmission Date: 20051028
  Serious: No
  Sender: FDA-Public Use
  Company Number: S04-USA-07043-01

PATIENT
  Age: 82 Year
  Sex: Male

DRUGS (4)
  1. NAMENDA [Suspect]
     Indication: DEMENTIA ALZHEIMER'S TYPE
     Dosage: 5 MG QD PO
     Route: 048
     Dates: start: 20041012, end: 20041018
  2. NAMENDA [Suspect]
     Indication: DEMENTIA ALZHEIMER'S TYPE
     Dosage: 5 MG BID PO
     Route: 048
     Dates: start: 20041019
  3. ASPIRIN [Concomitant]
  4. PROSTATE MEDICATION (NOS) [Concomitant]

REACTIONS (1)
  - CONSTIPATION [None]
